FAERS Safety Report 6259506-5 (Version None)
Quarter: 2009Q3

REPORT INFORMATION
  Report Type: 
  Country: None (occurrence: None)
  Receive Date: 20090708
  Receipt Date: 20090626
  Transmission Date: 20100115
  Serious: Yes (Hospitalization, Other)
  Sender: FDA-Public Use
  Company Number: US-RANBAXY-2009US-25392

PATIENT

DRUGS (13)
  1. VERAPAMIL [Suspect]
     Indication: ATRIAL TACHYCARDIA
     Dosage: 120 MG, QD
     Route: 048
  2. VERAPAMIL TABLETS BP 40MG [Suspect]
     Indication: ATRIAL TACHYCARDIA
     Dosage: 40 MG, QD
     Route: 048
  3. DIGOXIN [Suspect]
     Indication: CARDIAC FAILURE
     Dosage: UNK
     Dates: start: 20090427
  4. TRAVOPROST [Concomitant]
     Indication: DRUG USE FOR UNKNOWN INDICATION
     Route: 047
  5. BUDESONIDE/ FORMOTEROL FUMARATE [Concomitant]
     Indication: DRUG USE FOR UNKNOWN INDICATION
  6. OPINATE SEPTIMUM [Concomitant]
     Indication: DRUG USE FOR UNKNOWN INDICATION
     Route: 048
  7. TIOTROPIUM BROMIDE [Concomitant]
     Indication: DRUG USE FOR UNKNOWN INDICATION
     Dosage: 18 MCG
  8. FUROSEMIDE [Concomitant]
     Indication: DRUG USE FOR UNKNOWN INDICATION
     Dosage: 500 MG UNK
     Route: 048
  9. COLECALCIFEROL [Concomitant]
     Indication: DRUG USE FOR UNKNOWN INDICATION
     Dosage: 0.25 MCG
     Route: 048
  10. ZOPICLONE [Concomitant]
     Indication: DRUG USE FOR UNKNOWN INDICATION
     Dosage: 5 MG UNK
  11. INSULIN ASPART [Concomitant]
     Indication: DRUG USE FOR UNKNOWN INDICATION
  12. BRINZOLAMIDE [Concomitant]
     Indication: DRUG USE FOR UNKNOWN INDICATION
     Route: 047
  13. INSULIN GLARGINE [Concomitant]
     Indication: DRUG USE FOR UNKNOWN INDICATION

REACTIONS (3)
  - CARDIOACTIVE DRUG LEVEL INCREASED [None]
  - ORTHOSTATIC HYPOTENSION [None]
  - SYNCOPE [None]
